FAERS Safety Report 16214275 (Version 3)
Quarter: 2020Q1

REPORT INFORMATION
  Report Type: Spontaneous
  Country: US (occurrence: US)
  Receive Date: 20190418
  Receipt Date: 20200114
  Transmission Date: 20200409
  Serious: Yes (Death, Other)
  Sender: FDA-Public Use
  Company Number: US-ASTRAZENECA-2018SF65630

PATIENT
  Age: 65 Year
  Sex: Male
  Weight: 83.9 kg

DRUGS (58)
  1. FUROSEMIDE. [Concomitant]
     Active Substance: FUROSEMIDE
     Indication: SWELLING
     Dates: start: 2007, end: 2015
  2. SIMVASTATIN. [Concomitant]
     Active Substance: SIMVASTATIN
     Indication: BLOOD CHOLESTEROL INCREASED
     Dates: start: 2007, end: 2015
  3. PRILOSEC [Suspect]
     Active Substance: OMEPRAZOLE MAGNESIUM
     Indication: GASTROOESOPHAGEAL REFLUX DISEASE
     Route: 048
  4. NEXIUM [Suspect]
     Active Substance: ESOMEPRAZOLE MAGNESIUM
     Indication: GASTROOESOPHAGEAL REFLUX DISEASE
     Route: 048
     Dates: start: 20100823
  5. FUROSEMIDE. [Concomitant]
     Active Substance: FUROSEMIDE
  6. VANCOMYCIN [Concomitant]
     Active Substance: VANCOMYCIN
  7. PROTONIX [Concomitant]
     Active Substance: PANTOPRAZOLE SODIUM
  8. LEVOTHYROXINE. [Concomitant]
     Active Substance: LEVOTHYROXINE
  9. HYDRALAZINE HCL [Concomitant]
     Active Substance: HYDRALAZINE HYDROCHLORIDE
  10. LOSARTAN. [Concomitant]
     Active Substance: LOSARTAN
  11. LEVEMIR [Concomitant]
     Active Substance: INSULIN DETEMIR
  12. FLOMAX [Concomitant]
     Active Substance: TAMSULOSIN HYDROCHLORIDE
  13. MIDAZOLAM HCL [Concomitant]
     Active Substance: MIDAZOLAM HYDROCHLORIDE
  14. RANITIDINE. [Concomitant]
     Active Substance: RANITIDINE
     Dates: start: 2007, end: 2008
  15. NEXIUM [Suspect]
     Active Substance: ESOMEPRAZOLE MAGNESIUM
     Indication: GASTROOESOPHAGEAL REFLUX DISEASE
     Route: 048
     Dates: start: 2010
  16. ASPIRIN. [Concomitant]
     Active Substance: ASPIRIN
  17. VITAMIN D3 [Concomitant]
     Active Substance: CHOLECALCIFEROL
  18. ESOMEPRAZOLE. [Concomitant]
     Active Substance: ESOMEPRAZOLE MAGNESIUM
  19. LISINOPRIL. [Concomitant]
     Active Substance: LISINOPRIL
     Indication: HYPERTENSION
     Dates: start: 2007, end: 2012
  20. METFORMIN [Concomitant]
     Active Substance: METFORMIN HYDROCHLORIDE
  21. FUROSEMIDE. [Concomitant]
     Active Substance: FUROSEMIDE
  22. LANTUS [Concomitant]
     Active Substance: INSULIN GLARGINE
  23. PANTOPRAZOLE SODIUM. [Concomitant]
     Active Substance: PANTOPRAZOLE SODIUM
  24. AMLODIPINE [Concomitant]
     Active Substance: AMLODIPINE BESYLATE
  25. FISH OIL [Concomitant]
     Active Substance: FISH OIL
  26. PANTOPRAZOLE SODIUM. [Concomitant]
     Active Substance: PANTOPRAZOLE SODIUM
  27. COLACE [Concomitant]
     Active Substance: DOCUSATE SODIUM
  28. PEPCID [Concomitant]
     Active Substance: FAMOTIDINE
  29. VITAMIN B12 [Concomitant]
     Active Substance: CYANOCOBALAMIN
  30. ONDANSETRON HCL [Concomitant]
     Active Substance: ONDANSETRON HYDROCHLORIDE
  31. SULPHAMETHOXAZOLE [Concomitant]
     Active Substance: SULFAMETHOXAZOLE
  32. ZANTAC [Concomitant]
     Active Substance: RANITIDINE HYDROCHLORIDE
  33. FENTANYL CITRATE. [Concomitant]
     Active Substance: FENTANYL CITRATE
  34. ATORVASTATIN [Concomitant]
     Active Substance: ATORVASTATIN
     Indication: BLOOD CHOLESTEROL INCREASED
     Dates: start: 2015
  35. DIOVAN [Concomitant]
     Active Substance: VALSARTAN
  36. ISOSORBIDE MONO [Concomitant]
  37. GABAPENTIN. [Concomitant]
     Active Substance: GABAPENTIN
  38. NOVOLOG [Concomitant]
     Active Substance: INSULIN ASPART
  39. ACETAMINOPHEN. [Concomitant]
     Active Substance: ACETAMINOPHEN
  40. SODIUM CHLORIDE. [Concomitant]
     Active Substance: SODIUM CHLORIDE
  41. LOSARTAN. [Concomitant]
     Active Substance: LOSARTAN
  42. AZITHROMYCIN ANHYDROUS. [Concomitant]
     Active Substance: AZITHROMYCIN ANHYDROUS
  43. LEVOTHYROXINE. [Concomitant]
     Active Substance: LEVOTHYROXINE
  44. DOXAZOSIN [Concomitant]
     Active Substance: DOXAZOSIN MESYLATE
  45. CARVEDILOL. [Concomitant]
     Active Substance: CARVEDILOL
  46. BENZONATATE. [Concomitant]
     Active Substance: BENZONATATE
  47. GABAPENTIN. [Concomitant]
     Active Substance: GABAPENTIN
  48. TAMSULOSIN [Concomitant]
     Active Substance: TAMSULOSIN
  49. PRILOSEC [Suspect]
     Active Substance: OMEPRAZOLE MAGNESIUM
     Indication: GASTROOESOPHAGEAL REFLUX DISEASE
     Dosage: PRIOR TO NEXIUM INGESTION
     Route: 048
  50. DOXAZOSIN [Concomitant]
     Active Substance: DOXAZOSIN MESYLATE
  51. LORATADINE. [Concomitant]
     Active Substance: LORATADINE
  52. SPIRONOLACTONE. [Concomitant]
     Active Substance: SPIRONOLACTONE
  53. CEPHALEXIN. [Concomitant]
     Active Substance: CEPHALEXIN
  54. DOCUSATE SODIUM. [Concomitant]
     Active Substance: DOCUSATE SODIUM
  55. NITROGLYCERINE [Concomitant]
     Active Substance: NITROGLYCERIN
  56. CIPROFLOXACIN. [Concomitant]
     Active Substance: CIPROFLOXACIN
     Indication: INFECTION
     Dates: start: 2010, end: 2014
  57. GLIPIZIDE. [Concomitant]
     Active Substance: GLIPIZIDE
  58. CLARITHROMYCIN. [Concomitant]
     Active Substance: CLARITHROMYCIN

REACTIONS (9)
  - Chronic kidney disease-mineral and bone disorder [Unknown]
  - Nephrogenic anaemia [Unknown]
  - Renal failure [Fatal]
  - Acute kidney injury [Unknown]
  - Rebound acid hypersecretion [Unknown]
  - Respiratory failure [Fatal]
  - Pneumonia [Fatal]
  - Chronic kidney disease [Unknown]
  - Septic shock [Fatal]

NARRATIVE: CASE EVENT DATE: 2010
